FAERS Safety Report 23414320 (Version 3)
Quarter: 2024Q3

REPORT INFORMATION
  Report Type: Spontaneous
  Country: US (occurrence: US)
  Receive Date: 20240118
  Receipt Date: 20240719
  Transmission Date: 20241016
  Serious: No
  Sender: AMGEN
  Company Number: US-AMGEN-USASP2024010222

PATIENT
  Age: 60 Year
  Sex: Male

DRUGS (1)
  1. REPATHA [Suspect]
     Active Substance: EVOLOCUMAB
     Indication: Product used for unknown indication
     Dosage: 420 MILLIGRAM, UNK
     Route: 065

REACTIONS (2)
  - Drug dose omission by device [Unknown]
  - Lack of administration site rotation [Unknown]

NARRATIVE: CASE EVENT DATE: 20240116
